FAERS Safety Report 20511064 (Version 3)
Quarter: 2022Q2

REPORT INFORMATION
  Report Type: Spontaneous
  Country: LT (occurrence: LT)
  Receive Date: 20220224
  Receipt Date: 20220509
  Transmission Date: 20220721
  Serious: Yes (Death, Other)
  Sender: FDA-Public Use
  Company Number: LT-ASTELLAS-2022US006751

PATIENT
  Age: 89 Year
  Sex: Male

DRUGS (2)
  1. ENZALUTAMIDE [Suspect]
     Active Substance: ENZALUTAMIDE
     Indication: Prostate cancer
     Dosage: UNK UNK, UNKNOWN FREQ.
     Route: 065
     Dates: start: 20210325, end: 20211229
  2. DENOSUMAB [Concomitant]
     Active Substance: DENOSUMAB
     Indication: Prostate cancer
     Dosage: UNK UNK, UNKNOWN FREQ.
     Route: 065
     Dates: start: 20210325, end: 20211229

REACTIONS (10)
  - Malignant neoplasm progression [Fatal]
  - Hydrothorax [Unknown]
  - Ascites [Unknown]
  - Pulmonary hypertension [Unknown]
  - Pericardial effusion [Unknown]
  - Congestive hepatopathy [Unknown]
  - Cardiac failure [Unknown]
  - Cardiomegaly [Unknown]
  - Hepatic vein dilatation [Unknown]
  - COVID-19 [Unknown]

NARRATIVE: CASE EVENT DATE: 20210802
